FAERS Safety Report 9865390 (Version 1)
Quarter: 2014Q1

REPORT INFORMATION
  Report Type: Spontaneous
  Country: US (occurrence: US)
  Receive Date: 20140203
  Receipt Date: 20140203
  Transmission Date: 20141002
  Serious: No
  Sender: FDA-Public Use
  Company Number: US-ALLERGAN-1302905US

PATIENT
  Sex: Female

DRUGS (5)
  1. RESTASIS [Suspect]
     Indication: MEIBOMIAN GLAND DYSFUNCTION
     Dosage: 1 GTT, BID EACH EYE
     Route: 047
     Dates: start: 201201
  2. REFRESH OPTIVE SENSITIVE [Suspect]
     Indication: MEIBOMIAN GLAND DYSFUNCTION
     Dosage: 1 GTT, PRN EACH EYE
     Route: 047
  3. ASPIRIN [Concomitant]
     Indication: PROPHYLAXIS
     Dosage: 81 MG, QD
     Route: 048
     Dates: start: 2007
  4. ESTRADIOL [Concomitant]
     Indication: HORMONE REPLACEMENT THERAPY
     Dosage: UNK UNK, QD
  5. THERA TEARS [Concomitant]
     Indication: MEIBOMIAN GLAND DYSFUNCTION
     Dosage: UNK UNK, TID
     Route: 048
     Dates: start: 2007

REACTIONS (4)
  - Chemical burns of eye [Unknown]
  - Eye disorder [Unknown]
  - Ocular hyperaemia [Unknown]
  - Eye irritation [Unknown]
